FAERS Safety Report 11252982 (Version 1)
Quarter: 2015Q3

REPORT INFORMATION
  Report Type: Spontaneous
  Country: US (occurrence: US)
  Receive Date: 20150708
  Receipt Date: 20150708
  Transmission Date: 20151125
  Serious: Yes (Hospitalization)
  Sender: FDA-Public Use
  Company Number: US-ABBVIE-15P-163-1422220-00

PATIENT
  Age: 25 Year
  Sex: Male

DRUGS (1)
  1. DEPAKOTE SPRINKLES [Suspect]
     Active Substance: DIVALPROEX SODIUM
     Indication: EPILEPSY
     Dosage: SPRINKLES
     Route: 048
     Dates: start: 1995

REACTIONS (2)
  - Migraine [Unknown]
  - Hospitalisation [Unknown]
